FAERS Safety Report 13010855 (Version 1)
Quarter: 2016Q4

REPORT INFORMATION
  Report Type: Spontaneous
  Country: DE (occurrence: DE)
  Receive Date: 20161208
  Receipt Date: 20161208
  Transmission Date: 20170207
  Serious: Yes (Other)
  Sender: FDA-Public Use
  Company Number: DE-MYLANLABS-2016M1053214

PATIENT

DRUGS (1)
  1. CITALOPRAM [Suspect]
     Active Substance: CITALOPRAM HYDROBROMIDE
     Indication: ANXIETY DISORDER
     Dosage: 20 MG, UNK
     Route: 048
     Dates: start: 201108, end: 201510

REACTIONS (2)
  - Abortion spontaneous [Recovered/Resolved]
  - Foetal chromosome abnormality [Recovered/Resolved]
